FAERS Safety Report 7372896-5 (Version None)
Quarter: 2011Q1

REPORT INFORMATION
  Report Type: 
  Country: None (occurrence: None)
  Receive Date: 20110324
  Receipt Date: 20110322
  Transmission Date: 20110831
  Serious: Yes (Other)
  Sender: FDA-Public Use
  Company Number: SE-PFIZER INC-2011062636

PATIENT
  Age: 35 Year
  Sex: Female

DRUGS (1)
  1. DALACIN [Suspect]
     Indication: SEBACEOUS GLAND DISORDER
     Dosage: UNK
     Dates: end: 20110113

REACTIONS (6)
  - ASTHENIA [None]
  - PYREXIA [None]
  - URTICARIA [None]
  - PHARYNGEAL OEDEMA [None]
  - DIARRHOEA [None]
  - FATIGUE [None]
